FAERS Safety Report 19242178 (Version 3)
Quarter: 2021Q2

REPORT INFORMATION
  Report Type: Spontaneous
  Country: CL (occurrence: CL)
  Receive Date: 20210510
  Receipt Date: 20210623
  Transmission Date: 20210717
  Serious: Yes (Death, Other)
  Sender: FDA-Public Use
  Company Number: CL-EMD SERONO-9236828

PATIENT
  Age: 0 Day
  Sex: Female

DRUGS (1)
  1. MAVENCLAD [Suspect]
     Active Substance: CLADRIBINE
     Indication: MULTIPLE SCLEROSIS
     Route: 065

REACTIONS (2)
  - Anaemia neonatal [Fatal]
  - Premature baby [Unknown]

NARRATIVE: CASE EVENT DATE: 20200918
